FAERS Safety Report 8248637-6 (Version None)
Quarter: 2012Q1

REPORT INFORMATION
  Report Type: 
  Country: None (occurrence: None)
  Receive Date: 20120331
  Receipt Date: 20120319
  Transmission Date: 20120608
  Serious: Yes (Hospitalization)
  Sender: FDA-Public Use
  Company Number: AR-AMGEN-ARGSP2011024546

PATIENT
  Sex: Female
  Weight: 40 kg

DRUGS (4)
  1. METHOTREXATE [Concomitant]
     Dosage: UNK
  2. NAPROXEN [Concomitant]
     Dosage: UNK
  3. ENBREL [Suspect]
     Indication: RHEUMATOID ARTHRITIS
     Dosage: 50 MG, WEEKLY
     Route: 058
     Dates: start: 20080401, end: 20110417
  4. CLONAZEPAM [Concomitant]
     Dosage: UNK

REACTIONS (2)
  - PAIN [None]
  - JOINT DISLOCATION [None]
